FAERS Safety Report 24347484 (Version 1)
Quarter: 2024Q3

REPORT INFORMATION
  Report Type: Spontaneous
  Country: US (occurrence: US)
  Receive Date: 20240922
  Receipt Date: 20240922
  Transmission Date: 20241017
  Serious: No
  Sender: GLAXOSMITHKLINE
  Company Number: US-GSKCCFUS-Case-02102195_AE-116086

PATIENT
  Sex: Male

DRUGS (1)
  1. TRELEGY ELLIPTA [Suspect]
     Active Substance: FLUTICASONE FUROATE\UMECLIDINIUM BROMIDE\VILANTEROL TRIFENATATE
     Indication: Dyspnoea
     Dosage: 1 PUFF(S), QD, 100/62.5/25 MCG
     Route: 055

REACTIONS (4)
  - Dysphonia [Not Recovered/Not Resolved]
  - Ill-defined disorder [Recovering/Resolving]
  - Throat clearing [Recovering/Resolving]
  - Wrong technique in device usage process [Not Recovered/Not Resolved]
